FAERS Safety Report 19555062 (Version 3)
Quarter: 2023Q2

REPORT INFORMATION
  Report Type: Report from Study
  Country: US (occurrence: US)
  Receive Date: 20210716
  Receipt Date: 20230418
  Transmission Date: 20230721
  Serious: No
  Sender: FDA-Public Use
  Company Number: US-AMGEN INC.-USASP2021106708

PATIENT
  Age: 52 Year
  Sex: Female
  Weight: 56.6 kg

DRUGS (3)
  1. AIMOVIG [Suspect]
     Active Substance: ERENUMAB-AOOE
     Indication: Migraine
     Dosage: 70 MILLIGRAM, QMO
     Route: 058
     Dates: start: 20210607
  2. AIMOVIG [Suspect]
     Active Substance: ERENUMAB-AOOE
     Dosage: 70 MILLIGRAM, QMO
     Route: 065
  3. Triptan [Concomitant]
     Indication: Migraine
     Dosage: UNK

REACTIONS (9)
  - Therapeutic response shortened [Not Recovered/Not Resolved]
  - Administration site irritation [Unknown]
  - Rash [Not Recovered/Not Resolved]
  - Erythema [Not Recovered/Not Resolved]
  - Neuralgia [Unknown]
  - Back pain [Not Recovered/Not Resolved]
  - Ear pruritus [Not Recovered/Not Resolved]
  - Paraesthesia [Recovered/Resolved]
  - Skin irritation [Unknown]

NARRATIVE: CASE EVENT DATE: 20210101
